FAERS Safety Report 8920690 (Version 2)
Quarter: 2012Q4

REPORT INFORMATION
  Report Type: 
  Country: US (occurrence: US)
  Receive Date: 20121122
  Receipt Date: 20121204
  Transmission Date: 20130627
  Serious: Yes (Hospitalization, Other)
  Sender: FDA-Public Use
  Company Number: CHPA2012US023482

PATIENT
  Age: 51 Year

DRUGS (7)
  1. BENEFIBER W/ WHEAT DEXTRIN [Suspect]
     Indication: PROPHYLAXIS
     Dosage: Unk, Unk
     Route: 048
     Dates: start: 2001, end: 201103
  2. MIRALAX [Concomitant]
     Indication: GASTRITIS
     Route: 048
  3. PROTONIX [Concomitant]
     Route: 048
  4. NEXUM [Concomitant]
     Route: 048
  5. COMPAZINE [Concomitant]
     Route: 048
  6. ZOFRAN [Concomitant]
     Route: 048
  7. DRUG THERAPY NOS [Concomitant]

REACTIONS (17)
  - Liver disorder [Recovered/Resolved]
  - Fluid overload [Recovered/Resolved]
  - Blood pressure increased [Recovered/Resolved]
  - Cerebrovascular accident [Unknown]
  - Oedema peripheral [Recovered/Resolved]
  - Polyp [Not Recovered/Not Resolved]
  - Gastritis [Not Recovered/Not Resolved]
  - Diverticulitis [Recovered/Resolved]
  - Abdominal distension [Recovered/Resolved]
  - Hiatus hernia [Not Recovered/Not Resolved]
  - Ulcer [Not Recovered/Not Resolved]
  - Nephritis [Not Recovered/Not Resolved]
  - Abdominal discomfort [Not Recovered/Not Resolved]
  - Gastroenteritis [Not Recovered/Not Resolved]
  - Vomiting [Recovering/Resolving]
  - Diarrhoea [Recovered/Resolved]
  - Off label use [None]
